FAERS Safety Report 17396702 (Version 4)
Quarter: 2022Q3

REPORT INFORMATION
  Report Type: Spontaneous
  Country: US (occurrence: US)
  Receive Date: 20200210
  Receipt Date: 20220704
  Transmission Date: 20221026
  Serious: Yes (Other)
  Sender: FDA-Public Use
  Company Number: US-PFIZER INC-2019537880

PATIENT
  Age: 72 Year
  Sex: Male

DRUGS (2)
  1. CAVERJECT [Suspect]
     Active Substance: ALPROSTADIL
     Indication: Growth hormone deficiency
     Dosage: 40 UG, AS NEEDED (40 MCG INTO THE AREA UP TO 3 TIMES PER WEEK AS NEEDED)
     Route: 017
  2. CAVERJECT [Suspect]
     Active Substance: ALPROSTADIL
     Indication: Hypopituitarism

REACTIONS (4)
  - Mental impairment [Unknown]
  - Oropharyngeal pain [Unknown]
  - Product prescribing error [Unknown]
  - Off label use [Unknown]
